FAERS Safety Report 8016229-X (Version None)
Quarter: 2011Q4

REPORT INFORMATION
  Report Type: 
  Country: None (occurrence: None)
  Receive Date: 20111230
  Receipt Date: 20111219
  Transmission Date: 20120403
  Serious: Yes (Other)
  Sender: FDA-Public Use
  Company Number: BE-ELI_LILLY_AND_COMPANY-BE201108007869

PATIENT
  Age: 56 Year
  Sex: Male

DRUGS (3)
  1. CIALIS [Suspect]
     Indication: ERECTILE DYSFUNCTION
     Dosage: 10 MG, QD
  2. LIPITOR [Concomitant]
  3. IRBESARTAN [Concomitant]

REACTIONS (2)
  - BLINDNESS TRANSIENT [None]
  - BLINDNESS UNILATERAL [None]
